FAERS Safety Report 6360932-4 (Version None)
Quarter: 2009Q3

REPORT INFORMATION
  Report Type: 
  Country: None (occurrence: None)
  Receive Date: 20090918
  Receipt Date: 20090909
  Transmission Date: 20100115
  Serious: Yes (Hospitalization, Other)
  Sender: FDA-Public Use
  Company Number: PHHY2009FR38800

PATIENT
  Sex: Female

DRUGS (12)
  1. TEGRETOL-XR [Suspect]
     Indication: EPILEPSY
     Dosage: 800 MG DAILY
     Route: 048
     Dates: end: 20081210
  2. DEPAKENE [Interacting]
     Indication: EPILEPSY
     Dosage: 500 MG, TID
     Dates: end: 20081210
  3. RIVOTRIL [Interacting]
     Dosage: 2 MG, QD
  4. RIVOTRIL [Interacting]
     Dosage: 4 MG/DAY
  5. RIVOTRIL [Interacting]
     Dosage: 3 MG DAILY
  6. DI-ANTALVIC [Interacting]
     Dosage: 2 DF, PRN
  7. KARDEGIC [Concomitant]
     Dosage: UNK
     Dates: end: 20081123
  8. SOLIAN [Concomitant]
     Indication: PSYCHOTIC DISORDER
     Dosage: 400 MG QD
     Route: 048
     Dates: end: 20081210
  9. TRANSIPEG [Concomitant]
     Indication: CONSTIPATION
     Dosage: UNK
     Route: 048
     Dates: end: 20081210
  10. PARACETAMOL [Concomitant]
     Indication: PAIN
     Dosage: UNK
     Route: 048
     Dates: end: 20081210
  11. LANSOYL [Concomitant]
     Indication: CONSTIPATION
     Dosage: UNK
     Route: 048
     Dates: end: 20081210
  12. COVERSYL [Concomitant]
     Indication: HYPERTENSION
     Dosage: PRN
     Route: 048
     Dates: start: 20081210

REACTIONS (21)
  - ABNORMAL BEHAVIOUR [None]
  - CEREBRAL HAEMATOMA [None]
  - COMA [None]
  - CONFUSIONAL STATE [None]
  - DEPRESSED LEVEL OF CONSCIOUSNESS [None]
  - DISORIENTATION [None]
  - DRUG TOXICITY [None]
  - FACIAL PALSY [None]
  - FALL [None]
  - HALLUCINATION [None]
  - HYPERTHERMIA [None]
  - HYPOTENSION [None]
  - INCOHERENT [None]
  - INTRA-CEREBRAL ANEURYSM OPERATION [None]
  - INTRACRANIAL ANEURYSM [None]
  - MENINGORRHAGIA [None]
  - METABOLIC DISORDER [None]
  - SPEECH DISORDER [None]
  - TACHYCARDIA [None]
  - TOXIC ENCEPHALOPATHY [None]
  - VOMITING [None]
